FAERS Safety Report 9192106 (Version 5)
Quarter: 2013Q4

REPORT INFORMATION
  Report Type: Report from Study
  Country: KR (occurrence: KR)
  Receive Date: 20130327
  Receipt Date: 20131007
  Transmission Date: 20140711
  Serious: Yes (Hospitalization)
  Sender: FDA-Public Use
  Company Number: KR-MSD JAPAN-2012SP007744

PATIENT
  Age: 17 Year
  Sex: Male
  Weight: 65.5 kg

DRUGS (5)
  1. ASENAPINE MALEATE-SCHIZOPHRENIA [Suspect]
     Indication: SCHIZOPHRENIA
     Dosage: 2.5 MG, BID
     Route: 060
     Dates: start: 20120202, end: 20120529
  2. ASENAPINE MALEATE-SCHIZOPHRENIA [Suspect]
     Dosage: 5 MG, BID
     Route: 060
     Dates: start: 20120530, end: 20120611
  3. RIVOTRIL [Concomitant]
     Indication: INSOMNIA
     Dosage: 0.5 MG, QD
     Route: 048
     Dates: start: 20120202, end: 20120501
  4. ABILIFY [Concomitant]
     Dosage: 10 MG, BID
     Route: 065
  5. DEPAKOTE [Concomitant]
     Dosage: 500 MG, BID

REACTIONS (3)
  - Aggression [Recovering/Resolving]
  - Anxiety [Recovered/Resolved]
  - Oculogyric crisis [Recovered/Resolved]
